FAERS Safety Report 8755931 (Version 2)
Quarter: 2012Q4

REPORT INFORMATION
  Report Type: Spontaneous
  Country: IN (occurrence: None)
  Receive Date: 20120814
  Receipt Date: 20120905
  Transmission Date: 20130627
  Serious: Yes (Other)
  Sender: FDA-Public Use
  Company Number: CRC-12-375

PATIENT
  Sex: Female

DRUGS (1)
  1. LIPODOX [Suspect]
     Dates: start: 20120801

REACTIONS (2)
  - Back pain [None]
  - Burning sensation [None]
